FAERS Safety Report 10085213 (Version 1)
Quarter: 2014Q2

REPORT INFORMATION
  Report Type: Spontaneous
  Country: GB (occurrence: GB)
  Receive Date: 20140417
  Receipt Date: 20140417
  Transmission Date: 20141212
  Serious: Yes (Other)
  Sender: FDA-Public Use
  Company Number: PHHY2014GB043191

PATIENT
  Age: 69 Year
  Sex: Female
  Weight: 85 kg

DRUGS (2)
  1. DOXYCYCLINE [Suspect]
     Indication: LOWER RESPIRATORY TRACT INFECTION
     Dosage: 250 MG, TID
     Route: 048
     Dates: start: 20140309, end: 20140315
  2. DIHYDROXYACETONE [Suspect]
     Dosage: UNK UKN, UNK
     Route: 003

REACTIONS (2)
  - Skin discolouration [Not Recovered/Not Resolved]
  - Drug interaction [Not Recovered/Not Resolved]
